FAERS Safety Report 6595232-0 (Version None)
Quarter: 2010Q1

REPORT INFORMATION
  Report Type: 
  Country: None (occurrence: None)
  Receive Date: 20100212
  Receipt Date: 20100125
  Transmission Date: 20100710
  Serious: Yes (Life-Threatening, Hospitalization)
  Sender: FDA-Public Use
  Company Number: 20108088

PATIENT
  Age: 56 Year
  Sex: Male

DRUGS (10)
  1. LIORESAL [Suspect]
     Indication: MUSCLE SPASTICITY
     Dosage: MCG, DAILY, INTRATHECAL
     Route: 037
  2. KIVEXA [Concomitant]
  3. REYATAZ [Concomitant]
  4. KARDEGIC [Concomitant]
  5. CRESTOR [Concomitant]
  6. TEMERIT [Concomitant]
  7. EXFORGE [Concomitant]
  8. ESOMEPRAZOLE [Concomitant]
  9. NEURONTIN [Concomitant]
  10. DEROXAT [Concomitant]

REACTIONS (6)
  - ATRIOVENTRICULAR BLOCK FIRST DEGREE [None]
  - CEREBRAL ISCHAEMIA [None]
  - COMA [None]
  - CONVULSION [None]
  - SPASTIC PARAPLEGIA [None]
  - SYNCOPE [None]
